FAERS Safety Report 16914248 (Version 2)
Quarter: 2019Q4

REPORT INFORMATION
  Report Type: Spontaneous
  Country: US (occurrence: US)
  Receive Date: 20191014
  Receipt Date: 20191018
  Transmission Date: 20200122
  Serious: No
  Sender: FDA-Public Use
  Company Number: US-HORIZON-KRY-0840-2019

PATIENT
  Age: 60 Year
  Sex: Male

DRUGS (1)
  1. KRYSTEXXA [Suspect]
     Active Substance: PEGLOTICASE
     Indication: GOUT

REACTIONS (4)
  - Hyperhidrosis [Unknown]
  - Chills [Unknown]
  - Papule [Unknown]
  - Headache [Unknown]

NARRATIVE: CASE EVENT DATE: 20191005
